FAERS Safety Report 17729643 (Version 1)
Quarter: 2020Q2

REPORT INFORMATION
  Report Type: Spontaneous
  Country: RU (occurrence: RU)
  Receive Date: 20200430
  Receipt Date: 20200430
  Transmission Date: 20200714
  Serious: Yes (Other)
  Sender: FDA-Public Use
  Company Number: RU-ASTRAZENECA-2020SE55925

PATIENT
  Sex: Female

DRUGS (1)
  1. TAGRISSO [Suspect]
     Active Substance: OSIMERTINIB
     Route: 048

REACTIONS (6)
  - Loss of consciousness [Unknown]
  - Hydrocephalus [Unknown]
  - Bipolar disorder [Unknown]
  - Headache [Unknown]
  - Ill-defined disorder [Unknown]
  - Personality change [Unknown]
